FAERS Safety Report 7766906-0 (Version None)
Quarter: 2011Q3

REPORT INFORMATION
  Report Type: 
  Country: None (occurrence: None)
  Receive Date: 20110922
  Receipt Date: 20110920
  Transmission Date: 20111222
  Serious: No
  Sender: FDA-Public Use
  Company Number: US-PFIZER INC-2011172569

PATIENT
  Sex: Female

DRUGS (7)
  1. TOPAMAX [Concomitant]
     Dosage: UNK
  2. SUMATRIPTAN [Concomitant]
     Dosage: UNK
  3. ADVIL LIQUI-GELS [Suspect]
     Indication: PAIN IN EXTREMITY
  4. MILNACIPRAN HYDROCHLORIDE [Concomitant]
     Dosage: UNK
  5. TORADOL [Concomitant]
     Dosage: UNK
  6. TAPENTADOL [Concomitant]
     Dosage: UNK
  7. ADVIL LIQUI-GELS [Suspect]
     Indication: MIGRAINE
     Dosage: UNK
     Route: 048
     Dates: start: 20110701, end: 20110701

REACTIONS (1)
  - DRUG INEFFECTIVE [None]
